FAERS Safety Report 8212573-1 (Version None)
Quarter: 2012Q1

REPORT INFORMATION
  Report Type: 
  Country: None (occurrence: None)
  Receive Date: 20120315
  Receipt Date: 20120302
  Transmission Date: 20120608
  Serious: Yes (Other)
  Sender: FDA-Public Use
  Company Number: IT-ARROW GEN-2012-02632

PATIENT
  Age: 47 Year
  Sex: Female

DRUGS (3)
  1. SERTRALINE HYDROCHLORIDE [Suspect]
     Indication: OBSESSIVE-COMPULSIVE DISORDER
     Dosage: 200 MG, DAILY
     Route: 065
     Dates: start: 20101001, end: 20101001
  2. QUETIAPINE [Suspect]
     Indication: PSYCHOTIC DISORDER
     Dosage: 400 MG, DAILY
     Route: 065
     Dates: start: 20101001
  3. QUETIAPINE [Suspect]
     Dosage: 800 MG, DAILY
     Route: 065
     Dates: start: 20100901, end: 20101001

REACTIONS (1)
  - PLEUROTHOTONUS [None]
